FAERS Safety Report 25328817 (Version 1)
Quarter: 2025Q2

REPORT INFORMATION
  Report Type: Report from Study
  Country: BR (occurrence: BR)
  Receive Date: 20250519
  Receipt Date: 20250519
  Transmission Date: 20250717
  Serious: Yes (Other)
  Sender: ALEXION PHARMACEUTICALS
  Company Number: BR-AstraZeneca-CH-00868916A

PATIENT

DRUGS (1)
  1. BENRALIZUMAB [Suspect]
     Active Substance: BENRALIZUMAB
     Route: 065

REACTIONS (5)
  - Thrombosis [Recovered/Resolved]
  - Influenza [Unknown]
  - Inappropriate schedule of product administration [Recovered/Resolved]
  - Peripheral swelling [Unknown]
  - Cough [Unknown]
